FAERS Safety Report 9799573 (Version 2)
Quarter: 2014Q1

REPORT INFORMATION
  Report Type: Spontaneous
  Country: US (occurrence: US)
  Receive Date: 20140106
  Receipt Date: 20140106
  Transmission Date: 20141002
  Serious: No
  Sender: FDA-Public Use
  Company Number: US-GILEAD-2010-0030271

PATIENT
  Age: 85 Year
  Sex: Female

DRUGS (17)
  1. LETAIRIS [Suspect]
     Indication: PULMONARY ARTERIAL HYPERTENSION
     Route: 048
     Dates: start: 20100609, end: 20100706
  2. OXYGEN [Concomitant]
  3. ASPIRIN [Concomitant]
  4. PLAVIX [Concomitant]
  5. LASIX [Concomitant]
  6. DIOVAN [Concomitant]
  7. LIPITOR [Concomitant]
  8. CYMBALTA [Concomitant]
  9. SERAX [Concomitant]
  10. TYLENOL W/CODEINE [Concomitant]
  11. VICODIN [Concomitant]
  12. COQ10 [Concomitant]
  13. VITAMIN D [Concomitant]
  14. MULTIVITAMIN [Concomitant]
  15. CALCIUM D-GLUCARATE [Concomitant]
  16. VITAMIN E [Concomitant]
  17. VITAMIN B12 [Concomitant]

REACTIONS (2)
  - Nausea [Unknown]
  - Headache [Unknown]
